FAERS Safety Report 4499648-8 (Version None)
Quarter: 2004Q4

REPORT INFORMATION
  Report Type: 
  Country: None (occurrence: None)
  Receive Date: 20041108
  Receipt Date: 20041025
  Transmission Date: 20050328
  Serious: Yes (Hospitalization)
  Sender: FDA-Public Use
  Company Number: 2004056975

PATIENT
  Age: 26 Year
  Sex: Male

DRUGS (1)
  1. ZIPRASIDONE (IM) (ZIPRASIDONE) [Suspect]
     Indication: AGGRESSION
     Dosage: 40 MG (20 MG), INTRAMUSCULAR
     Route: 030
     Dates: start: 20040801, end: 20040801

REACTIONS (2)
  - AGGRESSION [None]
  - DRUG INEFFECTIVE [None]
